FAERS Safety Report 15904084 (Version 17)
Quarter: 2020Q4

REPORT INFORMATION
  Report Type: Other
  Country: CA (occurrence: CA)
  Receive Date: 20190204
  Receipt Date: 20201007
  Transmission Date: 20210113
  Serious: Yes (Hospitalization, Other)
  Sender: FDA-Public Use
  Company Number: CA-ROCHE-2254690

PATIENT
  Age: 25 Year
  Sex: Female

DRUGS (24)
  1. HYDROMORPHONE [Concomitant]
     Active Substance: HYDROMORPHONE
     Indication: PRODUCT USED FOR UNKNOWN INDICATION
     Route: 065
  2. XOLAIR [Suspect]
     Active Substance: OMALIZUMAB
     Route: 058
     Dates: start: 20190910
  3. PREDNISONE. [Suspect]
     Active Substance: PREDNISONE
     Indication: CROHN^S DISEASE
     Route: 065
     Dates: start: 202005
  4. VENTOLIN [Concomitant]
     Active Substance: ALBUTEROL SULFATE
     Indication: ASTHMA
     Dosage: PRN
     Route: 055
  5. XOLAIR [Suspect]
     Active Substance: OMALIZUMAB
     Route: 058
     Dates: start: 20180319
  6. XOLAIR [Suspect]
     Active Substance: OMALIZUMAB
     Route: 058
     Dates: start: 20190613
  7. XOLAIR [Suspect]
     Active Substance: OMALIZUMAB
     Route: 058
     Dates: start: 201908
  8. XOLAIR [Suspect]
     Active Substance: OMALIZUMAB
     Route: 058
     Dates: start: 20171123
  9. XOLAIR [Suspect]
     Active Substance: OMALIZUMAB
     Route: 058
     Dates: start: 20181227
  10. XOLAIR [Suspect]
     Active Substance: OMALIZUMAB
     Route: 058
  11. SINGULAIR [Concomitant]
     Active Substance: MONTELUKAST SODIUM
     Indication: ASTHMA
     Dosage: 2 DF, QD
     Route: 048
     Dates: start: 201612
  12. XOLAIR [Suspect]
     Active Substance: OMALIZUMAB
     Route: 058
     Dates: start: 20200204
  13. XOLAIR [Suspect]
     Active Substance: OMALIZUMAB
     Indication: ASTHMA
     Route: 058
     Dates: start: 20170425
  14. XOLAIR [Suspect]
     Active Substance: OMALIZUMAB
     Route: 058
     Dates: start: 20170719
  15. XOLAIR [Suspect]
     Active Substance: OMALIZUMAB
     Route: 058
  16. XOLAIR [Suspect]
     Active Substance: OMALIZUMAB
     Route: 058
     Dates: start: 20180115
  17. XOLAIR [Suspect]
     Active Substance: OMALIZUMAB
     Route: 058
     Dates: start: 20190312
  18. TINZAPARIN [Concomitant]
     Active Substance: TINZAPARIN
     Indication: PRODUCT USED FOR UNKNOWN INDICATION
     Route: 065
  19. XOLAIR [Suspect]
     Active Substance: OMALIZUMAB
     Route: 058
     Dates: start: 20180612
  20. XOLAIR [Suspect]
     Active Substance: OMALIZUMAB
     Route: 058
     Dates: start: 20200428
  21. PREDNISONE. [Suspect]
     Active Substance: PREDNISONE
     Indication: MALAISE
  22. XOLAIR [Suspect]
     Active Substance: OMALIZUMAB
     Route: 058
     Dates: start: 20181003
  23. XOLAIR [Suspect]
     Active Substance: OMALIZUMAB
     Route: 058
     Dates: start: 20191009
  24. PREDNISONE. [Suspect]
     Active Substance: PREDNISONE
     Indication: LOWER RESPIRATORY TRACT INFECTION
     Dosage: UNK (FOR 10 DAYS)
     Route: 065

REACTIONS (37)
  - Cough [Not Recovered/Not Resolved]
  - Sputum discoloured [Unknown]
  - Wheezing [Unknown]
  - Rhinorrhoea [Not Recovered/Not Resolved]
  - Fatigue [Unknown]
  - Dust allergy [Unknown]
  - Respiratory distress [Unknown]
  - Kidney infection [Unknown]
  - Weight increased [Unknown]
  - Nasal congestion [Unknown]
  - Pain in extremity [Unknown]
  - Chest discomfort [Unknown]
  - Nail injury [Unknown]
  - Sensitivity to weather change [Unknown]
  - Gastrointestinal disorder [Recovering/Resolving]
  - Heart rate increased [Unknown]
  - Throat clearing [Unknown]
  - Asthma [Unknown]
  - Discomfort [Unknown]
  - Dyspnoea [Recovered/Resolved]
  - Product dose omission issue [Unknown]
  - Nausea [Unknown]
  - Arthralgia [Recovering/Resolving]
  - Pleural effusion [Unknown]
  - Oropharyngeal pain [Not Recovered/Not Resolved]
  - Insomnia [Unknown]
  - Crohn^s disease [Recovering/Resolving]
  - Lower respiratory tract infection [Recovering/Resolving]
  - Influenza like illness [Unknown]
  - Hypotension [Unknown]
  - Weight decreased [Unknown]
  - Illness [Recovering/Resolving]
  - Nasopharyngitis [Not Recovered/Not Resolved]
  - Sleep disorder [Unknown]
  - Perfume sensitivity [Unknown]
  - Myalgia [Unknown]
  - Pulmonary embolism [Unknown]

NARRATIVE: CASE EVENT DATE: 20170426
